FAERS Safety Report 23482763 (Version 3)
Quarter: 2024Q4

REPORT INFORMATION
  Report Type: Spontaneous
  Country: US (occurrence: US)
  Receive Date: 20240205
  Receipt Date: 20241107
  Transmission Date: 20250115
  Serious: Yes (Other)
  Sender: KYOWA
  Company Number: US-KYOWAKIRIN-2024KK001645

PATIENT

DRUGS (10)
  1. CRYSVITA [Suspect]
     Active Substance: BUROSUMAB-TWZA
     Indication: Hereditary hypophosphataemic rickets
     Dosage: 40 MG, 1X/2 WEEKS
     Route: 058
  2. CRYSVITA [Suspect]
     Active Substance: BUROSUMAB-TWZA
     Dosage: 50 MG, 1X/2 WEEKS (50 MG UNDER THE SKIN)
     Route: 058
  3. CRYSVITA [Suspect]
     Active Substance: BUROSUMAB-TWZA
     Dosage: 50 MG, 1X/2 WEEKS (UNDER THE SKIN, EVERY TWO WEEKS)
     Route: 058
  4. CRYSVITA [Suspect]
     Active Substance: BUROSUMAB-TWZA
     Indication: Hereditary hypophosphataemic rickets
     Dosage: 50 MG, 1X/2 WEEKS (50 MG UNDER THE SKIN)
     Route: 058
  5. CRYSVITA [Suspect]
     Active Substance: BUROSUMAB-TWZA
     Dosage: 50 MG, 1X/2 WEEKS (50 MG UNDER THE SKIN, EVERY TWO WEEKS)
     Route: 058
  6. CRYSVITA [Concomitant]
     Active Substance: BUROSUMAB-TWZA
     Indication: Product used for unknown indication
     Dosage: 20 MG/ML (20 MG/ML VIAL)
     Route: 065
  7. BIVIGAM [Concomitant]
     Active Substance: HUMAN IMMUNOGLOBULIN G
     Indication: Product used for unknown indication
     Dosage: 10 % VIAL
     Route: 065
  8. VITAMIN D3 [Concomitant]
     Active Substance: CHOLECALCIFEROL
     Indication: Product used for unknown indication
     Dosage: 50 UG
     Route: 065
  9. ZYRTEC [Concomitant]
     Active Substance: CETIRIZINE HYDROCHLORIDE
     Indication: Product used for unknown indication
     Dosage: 10 MG
     Route: 065
  10. NORETHINDRONE ACETATE [Concomitant]
     Active Substance: NORETHINDRONE ACETATE
     Indication: Product used for unknown indication
     Dosage: 0.35 MG
     Route: 065

REACTIONS (8)
  - Chronic inflammatory demyelinating polyradiculoneuropathy [Unknown]
  - Tenderness [Recovering/Resolving]
  - Pyrexia [Recovered/Resolved]
  - Knee deformity [Not Recovered/Not Resolved]
  - COVID-19 [Unknown]
  - Alopecia [Unknown]
  - Constipation [Unknown]
  - Fatigue [Recovering/Resolving]

NARRATIVE: CASE EVENT DATE: 20240128
